FAERS Safety Report 9625764 (Version 1)
Quarter: 2013Q4

REPORT INFORMATION
  Report Type: Spontaneous
  Country: JP (occurrence: JP)
  Receive Date: 20131016
  Receipt Date: 20131016
  Transmission Date: 20140711
  Serious: No
  Sender: FDA-Public Use
  Company Number: PHHY2013JP114955

PATIENT
  Sex: Female

DRUGS (3)
  1. CARBAMAZEPINE [Suspect]
     Dosage: UNK UKN, UNK
  2. VALPROIC ACID [Suspect]
     Dosage: UNK UKN, UNK
  3. CLOBAZAM [Suspect]
     Dosage: UNK UKN, UNK

REACTIONS (2)
  - Gestational hypertension [Unknown]
  - Maternal exposure during delivery [Unknown]
